FAERS Safety Report 10906844 (Version 1)
Quarter: 2015Q1

REPORT INFORMATION
  Report Type: Spontaneous
  Country: US (occurrence: None)
  Receive Date: 20150309
  Receipt Date: 20150309
  Transmission Date: 20150721
  Serious: No
  Sender: FDA-Public Use
  Company Number: SOM-2965-AE

PATIENT
  Age: 83 Year
  Sex: Female

DRUGS (1)
  1. SF 5000 PLUS [Suspect]
     Active Substance: SODIUM FLUORIDE
     Dosage: TOPICAL ON TEETH?
     Route: 061

REACTIONS (3)
  - Product formulation issue [None]
  - Oral mucosal eruption [None]
  - Drug hypersensitivity [None]
